FAERS Safety Report 5087231-5 (Version None)
Quarter: 2006Q3

REPORT INFORMATION
  Report Type: 
  Country: None (occurrence: None)
  Receive Date: 20060821
  Receipt Date: 20060809
  Transmission Date: 20061208
  Serious: Yes (Life-Threatening, Other)
  Sender: FDA-Public Use
  Company Number: HQWYE780911JUL06

PATIENT
  Age: 41 Year
  Sex: Male

DRUGS (2)
  1. INDERAL [Suspect]
     Indication: HYPERTHYROIDISM
     Dosage: 30 MG 1X PER 1 DAY ORAL
     Route: 048
     Dates: start: 20060628, end: 20060630
  2. MERCAZOLE (THIAMAZOLE, ) [Suspect]
     Indication: HYPERTHYROIDISM
     Dosage: 30 MG 1X PER 1 DAY ORAL
     Route: 048
     Dates: start: 20060628, end: 20060630

REACTIONS (4)
  - CARDIAC FAILURE [None]
  - CONDITION AGGRAVATED [None]
  - CONGESTIVE CARDIOMYOPATHY [None]
  - MYOCARDITIS [None]
